FAERS Safety Report 20131975 (Version 1)
Quarter: 2021Q4

REPORT INFORMATION
  Report Type: Spontaneous
  Country: US (occurrence: None)
  Receive Date: 20211130
  Receipt Date: 20211130
  Transmission Date: 20220304
  Serious: No
  Sender: FDA-Public Use
  Company Number: US-Merck Healthcare KGaA-9281718

PATIENT

DRUGS (1)
  1. SAIZEN [Suspect]
     Active Substance: SOMATROPIN
     Indication: Product used for unknown indication

REACTIONS (5)
  - Insulin-like growth factor increased [Unknown]
  - Weight increased [Unknown]
  - Decreased activity [Unknown]
  - Feeling abnormal [Unknown]
  - Product prescribing error [Unknown]
